FAERS Safety Report 22626278 (Version 1)
Quarter: 2023Q2

REPORT INFORMATION
  Report Type: Spontaneous
  Country: US (occurrence: None)
  Receive Date: 20230614
  Receipt Date: 20230614
  Transmission Date: 20230721
  Serious: Yes (Other)
  Sender: FDA-Public Use
  Company Number: None

PATIENT
  Sex: Female

DRUGS (1)
  1. OMNIPAQUE [Suspect]
     Active Substance: IOHEXOL

REACTIONS (5)
  - Flushing [None]
  - Dyspnoea [None]
  - Wheezing [None]
  - Hypersensitivity [None]
  - Contrast media reaction [None]

NARRATIVE: CASE EVENT DATE: 20230525
